FAERS Safety Report 20044124 (Version 2)
Quarter: 2021Q4

REPORT INFORMATION
  Report Type: Report from Study
  Country: DE (occurrence: DE)
  Receive Date: 20211108
  Receipt Date: 20211118
  Transmission Date: 20220303
  Serious: Yes (Other)
  Sender: FDA-Public Use
  Company Number: DE-PFIZER INC-202101455942

PATIENT
  Age: 56 Year
  Sex: Male
  Weight: 94 kg

DRUGS (2)
  1. XELJANZ XR [Suspect]
     Active Substance: TOFACITINIB CITRATE
     Dosage: 11 MG, DAILY
     Dates: start: 20201210, end: 20211025
  2. RAMIPRIL [Concomitant]
     Active Substance: RAMIPRIL
     Indication: Renal hypertension
     Dosage: UNK
     Dates: start: 202101

REACTIONS (2)
  - Red blood cell sedimentation rate increased [Not Recovered/Not Resolved]
  - Paraesthesia ear [Not Recovered/Not Resolved]

NARRATIVE: CASE EVENT DATE: 20210614
